FAERS Safety Report 9802861 (Version 1)
Quarter: 2014Q1

REPORT INFORMATION
  Report Type: Spontaneous
  Country: AR (occurrence: None)
  Receive Date: 20140102
  Receipt Date: 20140102
  Transmission Date: 20141002
  Serious: Yes (Other)
  Sender: FDA-Public Use
  Company Number: VAL_02882_2013

PATIENT
  Sex: 0

DRUGS (1)
  1. METHYLERGOMETRINE MALEATE (BASOFORTINA- METHYLERGOMETRINE MALEATE) [Suspect]
     Indication: PRODUCT USED FOR UNKNOWN INDICATION
     Dosage: DF
     Route: 048

REACTIONS (2)
  - Haemorrhage [None]
  - Loss of consciousness [None]
